FAERS Safety Report 6226030-5 (Version None)
Quarter: 2009Q2

REPORT INFORMATION
  Report Type: 
  Country: None (occurrence: None)
  Receive Date: 20090612
  Receipt Date: 20090506
  Transmission Date: 20091009
  Serious: No
  Sender: FDA-Public Use
  Company Number: US-ABBOTT-09P-163-0571942-00

PATIENT
  Sex: Male
  Weight: 106.69 kg

DRUGS (4)
  1. HUMIRA [Suspect]
     Indication: PSORIASIS
     Route: 058
     Dates: start: 20090428
  2. ATENOLOL [Concomitant]
     Indication: HYPERTENSION
     Route: 048
  3. CYMBALTA [Concomitant]
     Indication: IRRITABLE BOWEL SYNDROME
     Route: 048
  4. MULTI-VITAMIN [Concomitant]
     Indication: VITAMIN SUPPLEMENTATION
     Route: 048

REACTIONS (1)
  - DRUG INEFFECTIVE [None]
